FAERS Safety Report 17299043 (Version 1)
Quarter: 2020Q1

REPORT INFORMATION
  Report Type: Spontaneous
  Country: US (occurrence: US)
  Receive Date: 20200122
  Receipt Date: 20200122
  Transmission Date: 20200409
  Serious: No
  Sender: FDA-Public Use
  Company Number: US-MYLANLABS-2020M1003412

PATIENT
  Age: 70 Year
  Sex: Female
  Weight: 77 kg

DRUGS (5)
  1. AMITRIPTYLINE HYDROCHLORIDE TABLETS, USP [Suspect]
     Active Substance: AMITRIPTYLINE HYDROCHLORIDE
     Indication: MIGRAINE
  2. XOPENEX HFA [Concomitant]
     Active Substance: LEVALBUTEROL TARTRATE
     Indication: ASTHMA
     Dosage: UNK
  3. XOPENEX HFA [Concomitant]
     Active Substance: LEVALBUTEROL TARTRATE
     Indication: CHRONIC OBSTRUCTIVE PULMONARY DISEASE
  4. AMITRIPTYLINE HYDROCHLORIDE TABLETS, USP [Suspect]
     Active Substance: AMITRIPTYLINE HYDROCHLORIDE
     Indication: CONCUSSION
     Dosage: UNK UNK, QOD  AT BEDTIME
     Route: 048
  5. AVENOVA [Concomitant]
     Active Substance: HYPOCHLOROUS ACID
     Indication: BLEPHARITIS
     Dosage: UNK

REACTIONS (13)
  - Food allergy [Unknown]
  - Sensitisation [Unknown]
  - Confusional state [Unknown]
  - Palpitations [Unknown]
  - Therapeutic response unexpected [Unknown]
  - Constipation [Unknown]
  - Off label use [Not Recovered/Not Resolved]
  - Feeling abnormal [Unknown]
  - Tremor [Unknown]
  - Pre-existing condition improved [Unknown]
  - Somnolence [Unknown]
  - Dyspepsia [Unknown]
  - Toxicity to various agents [Unknown]
